FAERS Safety Report 6420029-1 (Version None)
Quarter: 2009Q4

REPORT INFORMATION
  Report Type: 
  Country: None (occurrence: None)
  Receive Date: 20091029
  Receipt Date: 20090421
  Transmission Date: 20100525
  Serious: No
  Sender: FDA-Public Use
  Company Number: A0774203A

PATIENT
  Age: 52 Year
  Sex: Female
  Weight: 64.1 kg

DRUGS (1)
  1. SUMATRIPTAN [Suspect]
     Indication: MIGRAINE
     Route: 045
     Dates: start: 20090101

REACTIONS (10)
  - ACTIVITIES OF DAILY LIVING IMPAIRED [None]
  - FEELING COLD [None]
  - HYPERAESTHESIA [None]
  - HYPOAESTHESIA [None]
  - ILL-DEFINED DISORDER [None]
  - PAIN [None]
  - PARAESTHESIA [None]
  - PERIPHERAL COLDNESS [None]
  - RAYNAUD'S PHENOMENON [None]
  - SKIN DISCOLOURATION [None]
